FAERS Safety Report 4531042-3 (Version None)
Quarter: 2004Q4

REPORT INFORMATION
  Report Type: 
  Country: None (occurrence: None)
  Receive Date: 20041215
  Receipt Date: 20041201
  Transmission Date: 20050328
  Serious: Yes (Hospitalization, Disabling)
  Sender: FDA-Public Use
  Company Number: 8008255

PATIENT
  Age: 51 Year
  Sex: Male

DRUGS (3)
  1. KEPPRA [Suspect]
     Indication: EPILEPSY
     Dosage: 250 MG 2/D PO
     Route: 048
     Dates: end: 20041112
  2. VALPROATE SODIUM [Concomitant]
  3. CARBAMAZEPINE [Concomitant]

REACTIONS (4)
  - ATAXIA [None]
  - DYSPHEMIA [None]
  - NYSTAGMUS [None]
  - THINKING ABNORMAL [None]
